FAERS Safety Report 19800351 (Version 3)
Quarter: 2021Q4

REPORT INFORMATION
  Report Type: Report from Study
  Country: US (occurrence: US)
  Receive Date: 20210908
  Receipt Date: 20211004
  Transmission Date: 20220303
  Serious: Yes (Other)
  Sender: FDA-Public Use
  Company Number: US-BEH-2021135482

PATIENT
  Age: 11 Year
  Sex: Female
  Weight: 62.59 kg

DRUGS (3)
  1. HAEGARDA [Suspect]
     Active Substance: HUMAN C1-ESTERASE INHIBITOR
     Indication: Hereditary angioedema
     Dosage: 3000 INTERNATIONAL UNIT, BIW
     Route: 058
     Dates: start: 20210526
  2. HAEGARDA [Suspect]
     Active Substance: HUMAN C1-ESTERASE INHIBITOR
     Indication: Prophylaxis
     Dosage: 3800 INTERNATIONAL UNIT, BIW
     Route: 058
     Dates: start: 2021
  3. HAEGARDA [Suspect]
     Active Substance: HUMAN C1-ESTERASE INHIBITOR
     Indication: Hereditary angioedema

REACTIONS (8)
  - Hereditary angioedema [Unknown]
  - Hereditary angioedema [Unknown]
  - Underdose [Unknown]
  - Hereditary angioedema [Recovered/Resolved]
  - Nasopharyngitis [Recovering/Resolving]
  - Hereditary angioedema [Recovering/Resolving]
  - No adverse event [Unknown]
  - Inappropriate schedule of product administration [Unknown]

NARRATIVE: CASE EVENT DATE: 20210801
